FAERS Safety Report 14415292 (Version 2)
Quarter: 2018Q1

REPORT INFORMATION
  Report Type: Spontaneous
  Country: US (occurrence: US)
  Receive Date: 20180121
  Receipt Date: 20180226
  Transmission Date: 20180509
  Serious: Yes (Other)
  Sender: FDA-Public Use
  Company Number: US-BRISTOL-MYERS SQUIBB COMPANY-BMS-2018-003302

PATIENT
  Sex: Male
  Weight: 83.9 kg

DRUGS (3)
  1. ELIQUIS [Suspect]
     Active Substance: APIXABAN
     Indication: EMBOLISM VENOUS
     Dosage: 10 MG, BID
     Route: 048
     Dates: start: 20171227
  2. ELIQUIS [Suspect]
     Active Substance: APIXABAN
     Indication: PRODUCT USED FOR UNKNOWN INDICATION
     Dosage: 5 MG, BID
     Route: 048
  3. VITAMINS                           /00067501/ [Concomitant]
     Active Substance: VITAMINS
     Indication: PRODUCT USED FOR UNKNOWN INDICATION
     Route: 065

REACTIONS (12)
  - Genital haemorrhage [Unknown]
  - Epistaxis [Recovered/Resolved]
  - Scrotal swelling [Unknown]
  - Painful erection [Unknown]
  - Haematuria [Unknown]
  - Penile swelling [Recovered/Resolved]
  - Dyspareunia [Unknown]
  - Off label use [Unknown]
  - Post-traumatic stress disorder [Unknown]
  - Genital swelling [Recovered/Resolved]
  - Dysuria [Unknown]
  - Depression [Unknown]
